FAERS Safety Report 6655316-5 (Version None)
Quarter: 2010Q1

REPORT INFORMATION
  Report Type: 
  Country: None (occurrence: None)
  Receive Date: 20100329
  Receipt Date: 20100325
  Transmission Date: 20100710
  Serious: Yes (Death)
  Sender: FDA-Public Use
  Company Number: ES-EISAI INC.-E2080-00284-SPO-ES

PATIENT
  Age: 46 Year
  Sex: Female
  Weight: 70 kg

DRUGS (5)
  1. INOVELON [Suspect]
     Indication: LENNOX-GASTAUT SYNDROME
     Route: 048
     Dates: end: 20091226
  2. RISPERIDONE [Concomitant]
     Indication: LENNOX-GASTAUT SYNDROME
     Route: 048
     Dates: end: 20091226
  3. PHENOBARBITAL TAB [Concomitant]
     Indication: LENNOX-GASTAUT SYNDROME
     Route: 048
     Dates: end: 20091226
  4. CLOBAZAM [Concomitant]
     Indication: LENNOX-GASTAUT SYNDROME
     Route: 048
     Dates: end: 20091226
  5. OXCARBAZEPINE [Concomitant]
     Indication: LENNOX-GASTAUT SYNDROME
     Route: 048
     Dates: end: 20091226

REACTIONS (1)
  - SUDDEN UNEXPLAINED DEATH IN EPILEPSY [None]
